FAERS Safety Report 17447840 (Version 2)
Quarter: 2020Q1

REPORT INFORMATION
  Report Type: Spontaneous
  Country: BG (occurrence: BG)
  Receive Date: 20200221
  Receipt Date: 20200228
  Transmission Date: 20200409
  Serious: Yes (Other)
  Sender: FDA-Public Use
  Company Number: BG-ROCHE-2552454

PATIENT
  Age: 2 Year
  Sex: Female

DRUGS (4)
  1. TAMIFLU [Suspect]
     Active Substance: OSELTAMIVIR PHOSPHATE
     Indication: PROPHYLAXIS
     Route: 048
     Dates: start: 20200125, end: 20200127
  2. HEXALGIN [Concomitant]
     Indication: PYREXIA
     Route: 048
     Dates: start: 20200126, end: 20200129
  3. NUROFEN [IBUPROFEN] [Concomitant]
     Active Substance: IBUPROFEN
     Indication: PYREXIA
     Route: 048
     Dates: start: 20200124, end: 20200129
  4. PROSPAN [HEDERA HELIX LEAF] [Concomitant]
     Indication: COUGH
     Route: 048
     Dates: start: 20200124, end: 20200204

REACTIONS (8)
  - Confusional state [Recovered/Resolved]
  - Hallucination [Recovered/Resolved]
  - Abnormal behaviour [Recovered/Resolved]
  - Periorbital oedema [Recovered/Resolved]
  - Agitation [Recovered/Resolved]
  - Anxiety [Recovered/Resolved]
  - Nightmare [Recovered/Resolved]
  - Altered state of consciousness [Recovered/Resolved]

NARRATIVE: CASE EVENT DATE: 20200126
